FAERS Safety Report 6211100-8 (Version None)
Quarter: 2009Q2

REPORT INFORMATION
  Report Type: 
  Country: None (occurrence: None)
  Receive Date: 20090602
  Receipt Date: 20090527
  Transmission Date: 20091009
  Serious: Yes (Other)
  Sender: FDA-Public Use
  Company Number: US-BAYER-US-2007-008919

PATIENT
  Age: 41 Year
  Sex: Female
  Weight: 83 kg

DRUGS (4)
  1. MIRENA [Suspect]
     Indication: MENORRHAGIA
     Dosage: 20 ?G/DAY, CONT
     Route: 015
     Dates: start: 20060818, end: 20070618
  2. LOVAZA [Concomitant]
     Indication: BLOOD TRIGLYCERIDES INCREASED
     Dosage: UNIT DOSE: 1 G
     Route: 048
     Dates: start: 20071109
  3. TRIAMTERENE AND HYDROCHLOROTHIAZIDE [Concomitant]
     Indication: DRUG USE FOR UNKNOWN INDICATION
     Route: 048
     Dates: start: 20071204
  4. SULFONAMIDES AND TRIMETHOPRIM [Concomitant]
     Indication: DRUG USE FOR UNKNOWN INDICATION
     Dosage: 800-160 FOR 60 DAYS
     Route: 048
     Dates: start: 20070330

REACTIONS (5)
  - EMOTIONAL DISTRESS [None]
  - FEAR OF DEATH [None]
  - INSOMNIA [None]
  - METRORRHAGIA [None]
  - VENTRICULAR EXTRASYSTOLES [None]
